FAERS Safety Report 12406993 (Version 1)
Quarter: 2016Q2

REPORT INFORMATION
  Report Type: Spontaneous
  Country: FR (occurrence: FR)
  Receive Date: 20160526
  Receipt Date: 20160526
  Transmission Date: 20160815
  Serious: Yes (Hospitalization)
  Sender: FDA-Public Use
  Company Number: FR-009507513-1605FRA000070

PATIENT
  Age: 27 Year
  Sex: Female

DRUGS (3)
  1. ORGALUTRAN [Suspect]
     Active Substance: GANIRELIX ACETATE
     Dosage: 1 DF, QD (STRENGTH: 0.25ML/0.5ML)
     Route: 058
     Dates: start: 20160310, end: 20160319
  2. FOSTIMON [Suspect]
     Active Substance: UROFOLLITROPIN
     Dosage: 1 DF, QD (STRENGTH: 150 UI/ML)
     Route: 058
     Dates: start: 20160310, end: 20160319
  3. OVITRELLE [Suspect]
     Active Substance: CHORIOGONADOTROPIN ALFA
     Dosage: 1 DF, ONCE
     Route: 058
     Dates: start: 20160319, end: 2016

REACTIONS (2)
  - Pelvic fluid collection [Recovered/Resolved]
  - Ovarian hyperstimulation syndrome [Recovered/Resolved]

NARRATIVE: CASE EVENT DATE: 20160328
